FAERS Safety Report 5340265-5 (Version None)
Quarter: 2007Q2

REPORT INFORMATION
  Report Type: 
  Country: None (occurrence: None)
  Receive Date: 20070531
  Receipt Date: 20070529
  Transmission Date: 20071010
  Serious: Yes (Death, Hospitalization, Disabling)
  Sender: FDA-Public Use
  Company Number: PL-BRISTOL-MYERS SQUIBB COMPANY-13797444

PATIENT
  Age: 45 Year
  Sex: Female

DRUGS (3)
  1. CISPLATIN [Suspect]
     Indication: SQUAMOUS CELL CARCINOMA
     Route: 042
     Dates: start: 20050331, end: 20050331
  2. FLUOROURACIL [Suspect]
     Indication: SQUAMOUS CELL CARCINOMA
     Route: 042
     Dates: start: 20050403, end: 20050403
  3. DEXAMETHASONE TAB [Concomitant]
     Dates: start: 20050406

REACTIONS (6)
  - DISEASE PROGRESSION [None]
  - HYPERGLYCAEMIA [None]
  - HYPOTENSION [None]
  - NEUROLOGICAL EXAMINATION ABNORMAL [None]
  - PERFORMANCE STATUS DECREASED [None]
  - PNEUMONIA [None]
